FAERS Safety Report 23047059 (Version 1)
Quarter: 2023Q4

REPORT INFORMATION
  Report Type: Spontaneous
  Country: IN (occurrence: IN)
  Receive Date: 20231009
  Receipt Date: 20231009
  Transmission Date: 20240110
  Serious: Yes (Other)
  Sender: FDA-Public Use
  Company Number: IN-009507513-2310IND002282

PATIENT
  Age: 17 Year
  Sex: Male

DRUGS (2)
  1. PEMBROLIZUMAB [Suspect]
     Active Substance: PEMBROLIZUMAB
     Indication: Primary mediastinal large B-cell lymphoma stage IV
     Dosage: 100 MILLIGRAM, CYCLICAL
  2. DOXORUBICIN;GEMCITABINE;VINORELBINE [Concomitant]
     Indication: Primary mediastinal large B-cell lymphoma stage IV
     Dosage: UNK UNK, CYCLICAL
     Route: 042

REACTIONS (4)
  - Pneumonia respiratory syncytial viral [Recovered/Resolved]
  - Pneumonia influenzal [Recovered/Resolved]
  - Off label use [Unknown]
  - Product use in unapproved indication [Unknown]
